FAERS Safety Report 20848457 (Version 1)
Quarter: 2022Q2

REPORT INFORMATION
  Report Type: Spontaneous
  Country: US (occurrence: US)
  Receive Date: 20220519
  Receipt Date: 20220519
  Transmission Date: 20220720
  Serious: Yes (Other)
  Sender: FDA-Public Use
  Company Number: US-MYLANLABS-2022M1036430

PATIENT
  Age: 49 Year
  Sex: Male

DRUGS (18)
  1. GABAPENTIN [Suspect]
     Active Substance: GABAPENTIN
     Indication: Neck pain
     Dosage: 30 MILLIGRAM, , THREE TIMES A DAY
     Route: 065
  2. GABAPENTIN [Suspect]
     Active Substance: GABAPENTIN
     Indication: Pain
  3. ETODOLAC [Suspect]
     Active Substance: ETODOLAC
     Indication: Neck pain
     Dosage: 300 MILLIGRAM, PRN, THREE TIMES A DAY
     Route: 065
  4. ETODOLAC [Suspect]
     Active Substance: ETODOLAC
     Indication: Muscle spasms
  5. MELOXICAM [Suspect]
     Active Substance: MELOXICAM
     Indication: Neck pain
     Dosage: UNK
     Route: 065
  6. MELOXICAM [Suspect]
     Active Substance: MELOXICAM
     Indication: Muscle spasms
  7. TYLENOL [Suspect]
     Active Substance: ACETAMINOPHEN
     Indication: Neck pain
     Dosage: UNK
     Route: 065
  8. TYLENOL [Suspect]
     Active Substance: ACETAMINOPHEN
     Indication: Pain
  9. DULOXETINE [Suspect]
     Active Substance: DULOXETINE
     Indication: Neck pain
     Dosage: 20 MILLIGRAM, QD
     Route: 065
  10. DULOXETINE [Suspect]
     Active Substance: DULOXETINE
     Indication: Pain
  11. ROBAXIN [Suspect]
     Active Substance: METHOCARBAMOL
     Indication: Neck pain
     Dosage: 500 MILLIGRAM, TID, THREE TIMES A DAY
     Route: 065
  12. ROBAXIN [Suspect]
     Active Substance: METHOCARBAMOL
     Indication: Muscle spasms
  13. AMLODIPINE [Concomitant]
     Active Substance: AMLODIPINE BESYLATE
     Indication: Product used for unknown indication
     Dosage: 5 MILLIGRAM, QD
     Route: 065
  14. CARVEDILOL [Concomitant]
     Active Substance: CARVEDILOL
     Indication: Product used for unknown indication
     Dosage: 40 MILLIGRAM, QD
     Route: 065
  15. OLMESARTAN [Concomitant]
     Active Substance: OLMESARTAN
     Indication: Product used for unknown indication
     Dosage: 40 MILLIGRAM, QD
     Route: 065
  16. INSULIN NOS [Concomitant]
     Active Substance: INSULIN NOS
     Indication: Product used for unknown indication
     Dosage: UNK
     Route: 065
  17. BUPIVACAINE [Concomitant]
     Active Substance: BUPIVACAINE
     Indication: Neck pain
     Dosage: 4 MILLILITER, A LEFT CERVICOTHORACIC TRIGGER POINT INJECTIONS (TPIS) PROCEDURE USING BUPIVACAINE
     Route: 065
  18. BUPIVACAINE [Concomitant]
     Active Substance: BUPIVACAINE
     Indication: Pain

REACTIONS (2)
  - Drug ineffective [Unknown]
  - Somnolence [Unknown]
